FAERS Safety Report 19635712 (Version 1)
Quarter: 2021Q3

REPORT INFORMATION
  Report Type: Spontaneous
  Country: US (occurrence: US)
  Receive Date: 20210730
  Receipt Date: 20210730
  Transmission Date: 20211014
  Serious: Yes (Other)
  Sender: FDA-Public Use
  Company Number: None

PATIENT
  Age: 38 Year
  Sex: Female
  Weight: 63.9 kg

DRUGS (1)
  1. CHANTIX [Suspect]
     Active Substance: VARENICLINE TARTRATE
     Dosage: ?          QUANTITY:56 TABLET(S);?
     Route: 048
     Dates: start: 20210614

REACTIONS (6)
  - Depression [None]
  - Irritability [None]
  - Mood swings [None]
  - Emotional disorder [None]
  - Crying [None]
  - Headache [None]
